FAERS Safety Report 8231149-3 (Version None)
Quarter: 2012Q1

REPORT INFORMATION
  Report Type: 
  Country: None (occurrence: None)
  Receive Date: 20120323
  Receipt Date: 20120316
  Transmission Date: 20120608
  Serious: Yes (Hospitalization)
  Sender: FDA-Public Use
  Company Number: FR-PFIZER INC-2012069151

PATIENT
  Age: 76 Year
  Sex: Female

DRUGS (6)
  1. SPAGULAX [Concomitant]
     Dosage: UNK
  2. LYRICA [Suspect]
     Indication: TRIGEMINAL NEURALGIA
     Dosage: 150 MG DAILY
     Route: 048
     Dates: start: 20111101, end: 20120104
  3. ATENOLOL [Suspect]
     Indication: HYPERTENSION
     Dosage: 50 MG DAILY
     Route: 048
  4. MICARDIS [Suspect]
     Indication: HYPERTENSION
     Dosage: 40 MG DAILY
     Route: 048
  5. PANTOPRAZOLE [Concomitant]
     Dosage: UNK
  6. DIOSMINE [Concomitant]
     Dosage: UNK

REACTIONS (3)
  - CYTOLYTIC HEPATITIS [None]
  - CHOLESTASIS [None]
  - RENAL FAILURE ACUTE [None]
